FAERS Safety Report 15405069 (Version 3)
Quarter: 2018Q4

REPORT INFORMATION
  Report Type: Report from Study
  Country: None (occurrence: GB)
  Receive Date: 20180920
  Receipt Date: 20181003
  Transmission Date: 20190204
  Serious: Yes (Hospitalization, Other)
  Sender: FDA-Public Use
  Company Number: GB-ABBVIE-18K-167-2489205-00

PATIENT
  Age: 61 Year
  Sex: Female

DRUGS (1)
  1. HUMIRA [Suspect]
     Active Substance: ADALIMUMAB
     Indication: PSORIATIC ARTHROPATHY
     Route: 058
     Dates: start: 20180825, end: 2018

REACTIONS (11)
  - Nausea [Recovered/Resolved]
  - Ear irrigation [Recovering/Resolving]
  - Malaise [Unknown]
  - Feeling hot [Unknown]
  - Anaphylactic shock [Unknown]
  - Limb discomfort [Unknown]
  - Hypoaesthesia oral [Unknown]
  - Feeling abnormal [Unknown]
  - Tension headache [Recovering/Resolving]
  - Flushing [Recovering/Resolving]
  - Oropharyngeal pain [Unknown]

NARRATIVE: CASE EVENT DATE: 20180825
